FAERS Safety Report 8932552 (Version 1)
Quarter: 2012Q4

REPORT INFORMATION
  Report Type: Spontaneous
  Country: US (occurrence: None)
  Receive Date: 20121121
  Receipt Date: 20121121
  Transmission Date: 20130627
  Serious: Yes (Death)
  Sender: FDA-Public Use
  Company Number: None

PATIENT
  Age: 26 Year
  Sex: Female
  Weight: 81.65 kg

DRUGS (1)
  1. PROZAC [Suspect]
     Indication: DEPRESSION
     Route: 048
     Dates: start: 1987, end: 1988

REACTIONS (3)
  - Pregnancy [None]
  - Death neonatal [None]
  - Exposure during pregnancy [None]
